FAERS Safety Report 12328738 (Version 1)
Quarter: 2016Q2

REPORT INFORMATION
  Report Type: Spontaneous
  Country: US (occurrence: US)
  Receive Date: 20160503
  Receipt Date: 20160503
  Transmission Date: 20160815
  Serious: No
  Sender: FDA-Public Use
  Company Number: US-BEH-2015050425

PATIENT
  Age: 69 Year
  Sex: Female

DRUGS (2)
  1. HIZENTRA [Suspect]
     Active Substance: HUMAN IMMUNOGLOBULIN G
     Indication: PRODUCT USED FOR UNKNOWN INDICATION
     Dosage: FOR PAST 2.5 YEARS
  2. CELEBREX [Concomitant]
     Active Substance: CELECOXIB

REACTIONS (1)
  - Glomerular filtration rate decreased [Unknown]
